FAERS Safety Report 19927682 (Version 1)
Quarter: 2021Q4

REPORT INFORMATION
  Report Type: Spontaneous
  Country: US (occurrence: US)
  Receive Date: 20211007
  Receipt Date: 20211007
  Transmission Date: 20220304
  Serious: No
  Sender: FDA-Public Use
  Company Number: US-INDIVIOR US-INDV-128650-2021

PATIENT

DRUGS (1)
  1. SUBLOCADE [Suspect]
     Active Substance: BUPRENORPHINE
     Indication: Drug dependence
     Dosage: 300 MILLIGRAM
     Route: 065
     Dates: start: 20210210, end: 20210210

REACTIONS (1)
  - Exposure via partner [Recovered/Resolved]

NARRATIVE: CASE EVENT DATE: 20210210
